FAERS Safety Report 6300996-7 (Version None)
Quarter: 2009Q3

REPORT INFORMATION
  Report Type: 
  Country: None (occurrence: None)
  Receive Date: 20090806
  Receipt Date: 20090806
  Transmission Date: 20100115
  Serious: Yes (Other)
  Sender: FDA-Public Use
  Company Number: None

PATIENT
  Sex: Male
  Weight: 80.9 kg

DRUGS (1)
  1. SEROQUEL [Suspect]

REACTIONS (1)
  - RASH PRURITIC [None]
